FAERS Safety Report 5217449-X (Version None)
Quarter: 2007Q1

REPORT INFORMATION
  Report Type: 
  Country: None (occurrence: None)
  Receive Date: 20070124
  Receipt Date: 20060317
  Transmission Date: 20070707
  Serious: No
  Sender: FDA-Public Use
  Company Number: US-GLAXOSMITHKLINE-A0596020A

PATIENT
  Age: 15 Year
  Sex: Male

DRUGS (3)
  1. PAXIL CR [Suspect]
     Indication: DRUG USE FOR UNKNOWN INDICATION
     Dosage: 37.5MG PER DAY
     Route: 048
  2. NEURONTIN [Concomitant]
  3. DOXYCYCLINE [Concomitant]

REACTIONS (1)
  - ABDOMINAL PAIN [None]
